FAERS Safety Report 8215895-3 (Version None)
Quarter: 2012Q1

REPORT INFORMATION
  Report Type: 
  Country: None (occurrence: None)
  Receive Date: 20120316
  Receipt Date: 20120314
  Transmission Date: 20120608
  Serious: Yes (Death)
  Sender: FDA-Public Use
  Company Number: CO-JNJFOC-20120307896

PATIENT
  Age: 84 Year
  Sex: Male

DRUGS (1)
  1. GALANTAMINE HYDROBROMIDE [Suspect]
     Indication: SENILE DEMENTIA
     Route: 048
     Dates: start: 20101203

REACTIONS (1)
  - PNEUMONIA [None]
